FAERS Safety Report 8397412-0 (Version None)
Quarter: 2012Q2

REPORT INFORMATION
  Report Type: 
  Country: None (occurrence: None)
  Receive Date: 20120531
  Receipt Date: 20120507
  Transmission Date: 20120825
  Serious: Yes (Life-Threatening, Hospitalization)
  Sender: FDA-Public Use
  Company Number: DK-BAYER-2011-114024

PATIENT
  Age: 21 Year
  Sex: Female

DRUGS (8)
  1. YASMIN [Suspect]
     Dosage: UNK
     Route: 048
     Dates: end: 20111022
  2. YASMIN [Suspect]
  3. PREDNISOLONE [Concomitant]
     Indication: SCLERODERMA
  4. IBUPROFEN [Concomitant]
     Indication: PAIN
  5. ALNOK [Concomitant]
  6. SULFASALAZINE [Concomitant]
     Indication: SCLERODERMA
     Dosage: 1000 MG
  7. ESOMEPRAZOLE MAGNESIUM [Concomitant]
     Indication: DYSPEPSIA
     Dosage: 40 MG
  8. ACETAMINOPHEN [Concomitant]
     Indication: PAIN

REACTIONS (2)
  - CEREBRAL THROMBOSIS [None]
  - COMA [None]
